FAERS Safety Report 5414946-9 (Version None)
Quarter: 2007Q3

REPORT INFORMATION
  Report Type: 
  Country: None (occurrence: None)
  Receive Date: 20070813
  Receipt Date: 20070813
  Transmission Date: 20080115
  Serious: Yes (Life-Threatening)
  Sender: FDA-Public Use
  Company Number: None

PATIENT
  Age: 66 Year
  Sex: Female
  Weight: 54.4316 kg

DRUGS (2)
  1. LOVENOX [Suspect]
     Indication: THROMBOSIS PROPHYLAXIS
     Dosage: 30 MG EVERY 12 HRS SUBQ
     Route: 058
     Dates: start: 20070301, end: 20070306
  2. ARIXTRA [Suspect]
     Indication: PULMONARY EMBOLISM
     Dosage: 7.5 MG EVERY 24 HRS SUBQ
     Route: 058
     Dates: start: 20070306, end: 20070307

REACTIONS (5)
  - DIZZINESS [None]
  - FALL [None]
  - HAEMATOMA [None]
  - HYPERHIDROSIS [None]
  - PULMONARY EMBOLISM [None]
